FAERS Safety Report 5069146-1 (Version None)
Quarter: 2006Q3

REPORT INFORMATION
  Report Type: 
  Country: None (occurrence: None)
  Receive Date: 20060731
  Receipt Date: 20060720
  Transmission Date: 20061208
  Serious: Yes (Other)
  Sender: FDA-Public Use
  Company Number: HQWYE659130JUL04

PATIENT
  Age: 49 Year
  Sex: Female
  Weight: 71.28 kg

DRUGS (4)
  1. PREMARIN [Suspect]
     Indication: HORMONE REPLACEMENT THERAPY
  2. ESTRATEST [Suspect]
     Indication: HORMONE REPLACEMENT THERAPY
  3. PREMARIN [Suspect]
  4. PROVERA [Suspect]
     Indication: HORMONE REPLACEMENT THERAPY

REACTIONS (6)
  - BREAST CANCER FEMALE [None]
  - BREAST CANCER METASTATIC [None]
  - DEVICE RELATED INFECTION [None]
  - OESTROGEN RECEPTOR ASSAY POSITIVE [None]
  - POSTOPERATIVE INFECTION [None]
  - PROGESTERONE RECEPTOR ASSAY POSITIVE [None]
